FAERS Safety Report 9159316 (Version 1)
Quarter: 2013Q1

REPORT INFORMATION
  Report Type: Spontaneous
  Country: AT (occurrence: AT)
  Receive Date: 20130313
  Receipt Date: 20130313
  Transmission Date: 20140127
  Serious: Yes (Life-Threatening, Hospitalization)
  Sender: FDA-Public Use
  Company Number: AT-JNJFOC-20130217134

PATIENT
  Age: 66 Year
  Sex: Female

DRUGS (2)
  1. DUROGESIC [Suspect]
     Indication: PAIN
     Route: 062
     Dates: start: 20130219, end: 20130219
  2. DUROGESIC [Suspect]
     Indication: PAIN
     Route: 062
     Dates: start: 20130220, end: 20130220

REACTIONS (4)
  - Apnoea [Recovering/Resolving]
  - Coma [Recovering/Resolving]
  - Overdose [Recovering/Resolving]
  - Acute respiratory distress syndrome [Unknown]
